FAERS Safety Report 7354488-7 (Version None)
Quarter: 2011Q1

REPORT INFORMATION
  Report Type: 
  Country: None (occurrence: None)
  Receive Date: 20110316
  Receipt Date: 20110308
  Transmission Date: 20110831
  Serious: Yes (Other)
  Sender: FDA-Public Use
  Company Number: US-ASTELLAS-2011US000987

PATIENT
  Sex: Male

DRUGS (1)
  1. VIBATIV [Suspect]
     Indication: INFECTION
     Dosage: UNK
     Route: 042

REACTIONS (2)
  - CONDITION AGGRAVATED [None]
  - INFECTION [None]
